FAERS Safety Report 11204467 (Version 2)
Quarter: 2015Q3

REPORT INFORMATION
  Report Type: Spontaneous
  Country: US (occurrence: US)
  Receive Date: 20150621
  Receipt Date: 20150702
  Transmission Date: 20151125
  Serious: No
  Sender: FDA-Public Use
  Company Number: US-ASTRAZENECA-2015SE56752

PATIENT
  Sex: Female
  Weight: 78 kg

DRUGS (2)
  1. FARXIGA [Suspect]
     Active Substance: DAPAGLIFLOZIN PROPANEDIOL
     Indication: TYPE 2 DIABETES MELLITUS
     Route: 048
     Dates: start: 20150606
  2. GLYBURIDE MICRONASE [Concomitant]
     Route: 048

REACTIONS (2)
  - Abdominal distension [Unknown]
  - Blood glucose increased [Unknown]
